FAERS Safety Report 23767369 (Version 2)
Quarter: 2024Q2

REPORT INFORMATION
  Report Type: Spontaneous
  Country: CN (occurrence: CN)
  Receive Date: 20240422
  Receipt Date: 20240426
  Transmission Date: 20240716
  Serious: Yes (Death, Life-Threatening, Hospitalization)
  Sender: FDA-Public Use
  Company Number: CN-BAYER-2024A058908

PATIENT
  Age: 76 Year
  Sex: Female

DRUGS (1)
  1. XARELTO [Suspect]
     Active Substance: RIVAROXABAN
     Indication: Thrombosis prophylaxis
     Dosage: 10 MG, QD
     Route: 048
     Dates: start: 20240308, end: 20240309

REACTIONS (8)
  - Gastrointestinal haemorrhage [Fatal]
  - Haematemesis [Fatal]
  - Melaena [Fatal]
  - Blood loss anaemia [Fatal]
  - Haematochezia [Unknown]
  - Conjunctival pallor [Unknown]
  - Pallor [Unknown]
  - Oedema peripheral [Unknown]

NARRATIVE: CASE EVENT DATE: 20240309
